FAERS Safety Report 11658081 (Version 2)
Quarter: 2015Q4

REPORT INFORMATION
  Report Type: Spontaneous
  Country: US (occurrence: US)
  Receive Date: 20151024
  Receipt Date: 20151028
  Transmission Date: 20160304
  Serious: Yes (Hospitalization)
  Sender: FDA-Public Use
  Company Number: US-AMGEN-USASP2015105825

PATIENT
  Sex: Male
  Weight: 81.64 kg

DRUGS (1)
  1. REPATHA [Suspect]
     Active Substance: EVOLOCUMAB
     Indication: HYPERCHOLESTEROLAEMIA
     Dosage: 140 MG, UNK
     Route: 058
     Dates: start: 20150927

REACTIONS (8)
  - Sneezing [Recovering/Resolving]
  - Laryngitis [Recovered/Resolved]
  - Upper-airway cough syndrome [Not Recovered/Not Resolved]
  - Back pain [Recovering/Resolving]
  - Cough [Not Recovered/Not Resolved]
  - Nasopharyngitis [Recovering/Resolving]
  - Oropharyngeal pain [Not Recovered/Not Resolved]
  - Upper respiratory tract infection [Unknown]

NARRATIVE: CASE EVENT DATE: 20150929
